FAERS Safety Report 4681032-5 (Version None)
Quarter: 2005Q2

REPORT INFORMATION
  Report Type: 
  Country: None (occurrence: None)
  Receive Date: 20050603
  Receipt Date: 20050523
  Transmission Date: 20051028
  Serious: Yes (Hospitalization)
  Sender: FDA-Public Use
  Company Number: DE-AMGEN-UK134938

PATIENT
  Sex: Female

DRUGS (2)
  1. AMG 099073 [Suspect]
     Indication: HYPERPARATHYROIDISM SECONDARY
     Route: 048
     Dates: start: 20041228, end: 20050520
  2. DICLOFENAC [Suspect]

REACTIONS (2)
  - ABDOMINAL PAIN [None]
  - VOMITING [None]
